FAERS Safety Report 8224408-1 (Version None)
Quarter: 2012Q1

REPORT INFORMATION
  Report Type: 
  Country: None (occurrence: None)
  Receive Date: 20120319
  Receipt Date: 20120229
  Transmission Date: 20120608
  Serious: Yes (Other)
  Sender: FDA-Public Use
  Company Number: CRC-11-316

PATIENT
  Age: 30 Year
  Sex: Male
  Weight: 80.7403 kg

DRUGS (10)
  1. OXCARBAZEPINE [Suspect]
     Indication: CONVULSION
     Dosage: 600 MG 2X/DAY; ORALLY
     Route: 048
     Dates: start: 20070101, end: 20111201
  2. KEPPRA [Concomitant]
  3. DILANTIN [Concomitant]
  4. LIPITOR [Concomitant]
  5. ABILIFY [Concomitant]
  6. RISPERDAL [Concomitant]
  7. OXCARBAZEPINE [Suspect]
     Indication: CONVULSION
     Dosage: 600 MG 2X/DAY; ORALLY
     Route: 048
     Dates: start: 20070101, end: 20111201
  8. LEXAPRO [Concomitant]
  9. ALLERGY MEDICINE [Concomitant]
  10. BENZTROPIN [Concomitant]

REACTIONS (3)
  - MEDICATION RESIDUE [None]
  - CONVULSION [None]
  - PRODUCT SUBSTITUTION ISSUE [None]
